FAERS Safety Report 18798973 (Version 1)
Quarter: 2021Q1

REPORT INFORMATION
  Report Type: Spontaneous
  Country: US (occurrence: US)
  Receive Date: 20210127
  Receipt Date: 20210127
  Transmission Date: 20210419
  Serious: Yes (Hospitalization)
  Sender: FDA-Public Use
  Company Number: None

PATIENT
  Sex: Female

DRUGS (11)
  1. FOLIC ACID. [Concomitant]
     Active Substance: FOLIC ACID
  2. OLOPATADINE. [Concomitant]
     Active Substance: OLOPATADINE
  3. LORAZEPAM. [Concomitant]
     Active Substance: LORAZEPAM
  4. MELATONIN [Concomitant]
     Active Substance: MELATONIN
  5. CLARITIN [Concomitant]
     Active Substance: LORATADINE
  6. MULTIVITAMIN [Concomitant]
     Active Substance: VITAMINS
  7. NEULASTA [Suspect]
     Active Substance: PEGFILGRASTIM
     Indication: CHRONIC MYELOID LEUKAEMIA
     Dosage: ?          OTHER FREQUENCY:24?72 HR/AFTER CHE;?
     Route: 058
     Dates: start: 20201221
  8. DOXYCYCL HYC [Concomitant]
  9. PREDNISONE. [Concomitant]
     Active Substance: PREDNISONE
  10. MAGNESIUM [Concomitant]
     Active Substance: MAGNESIUM
  11. VITAMIN D [Concomitant]
     Active Substance: VITAMIN D NOS

REACTIONS (1)
  - Hospitalisation [None]
